FAERS Safety Report 10200917 (Version 1)
Quarter: 2014Q2

REPORT INFORMATION
  Report Type: Spontaneous
  Country: IE (occurrence: IE)
  Receive Date: 20140528
  Receipt Date: 20140528
  Transmission Date: 20141212
  Serious: Yes (Hospitalization)
  Sender: FDA-Public Use
  Company Number: IE-AMGEN-IRLSP2014038093

PATIENT
  Age: 85 Year
  Sex: Female

DRUGS (14)
  1. PROLIA [Suspect]
     Indication: OSTEOPOROSIS
     Dosage: 60 MG, Q6MO
     Route: 058
     Dates: start: 20131011
  2. PARACETAMOL [Concomitant]
     Dosage: 1000 MG, QID
     Dates: start: 20130814
  3. IMODIUM PLUS [Concomitant]
     Indication: DIARRHOEA
     Dosage: 2 MG, BID
     Dates: start: 20140120
  4. FUROSEMIDE [Concomitant]
     Dosage: 20 MG, UNK
     Dates: start: 20140218
  5. AMLODE [Concomitant]
     Dosage: 5 MG, QD
  6. ATECOR [Concomitant]
     Dosage: 100 MG, QD
  7. COVERSYL                           /00790702/ [Concomitant]
     Dosage: 5 MG, QD
  8. LANOXIN [Concomitant]
     Dosage: 62.5 MUG, QD
  9. ARIMIDEX [Concomitant]
     Dosage: 1 MG, QD
  10. LIPOSTAT [Concomitant]
     Dosage: 20 MG, QD
  11. PROTIUM                            /01263204/ [Concomitant]
     Dosage: 40 MG, QD
  12. GELTEARS [Concomitant]
  13. XARELTO [Concomitant]
     Dosage: 20 MG, QD
  14. ALLOPURINOL [Concomitant]
     Dosage: 300 MG, QD

REACTIONS (3)
  - Hypercalcaemia [Recovered/Resolved]
  - Malaise [Recovered/Resolved]
  - Lethargy [Recovered/Resolved]
